FAERS Safety Report 18648688 (Version 1)
Quarter: 2020Q4

REPORT INFORMATION
  Report Type: Spontaneous
  Country: ZA (occurrence: ZA)
  Receive Date: 20201222
  Receipt Date: 20201222
  Transmission Date: 20210114
  Serious: Yes (Other)
  Sender: FDA-Public Use
  Company Number: ZA-GLAXOSMITHKLINE-ZA2020GSK249500

PATIENT
  Age: 28 Year
  Sex: Male

DRUGS (5)
  1. ACICLOVIR [Suspect]
     Active Substance: ACYCLOVIR
     Dosage: 400 MG, BID
     Route: 048
  2. ACICLOVIR [Suspect]
     Active Substance: ACYCLOVIR
     Indication: ADENOVIRAL CONJUNCTIVITIS
     Dosage: 800 MG, FIVE TIMES DAILY
     Route: 048
  3. ZIDOVUDINE. [Concomitant]
     Active Substance: ZIDOVUDINE
     Indication: HIV INFECTION
     Dosage: UNK
  4. LOPINAVIR [Concomitant]
     Active Substance: LOPINAVIR
     Indication: HIV INFECTION
     Dosage: UNK
  5. RITONAVIR. [Concomitant]
     Active Substance: RITONAVIR
     Indication: HIV INFECTION
     Dosage: UNK

REACTIONS (9)
  - Corneal neovascularisation [Unknown]
  - Drug resistance [Unknown]
  - Conjunctival ulcer [Recovering/Resolving]
  - Corneal deposits [Unknown]
  - Conjunctival scar [Unknown]
  - Pathogen resistance [Unknown]
  - Condition aggravated [Unknown]
  - Symblepharon [Unknown]
  - Cataract subcapsular [Unknown]
